FAERS Safety Report 14557553 (Version 1)
Quarter: 2018Q1

REPORT INFORMATION
  Report Type: Spontaneous
  Country: TR (occurrence: TR)
  Receive Date: 20180221
  Receipt Date: 20180221
  Transmission Date: 20180509
  Serious: Yes (Hospitalization)
  Sender: FDA-Public Use
  Company Number: TR-NOVAST LABORATORIES, LTD-TR-2018NOV000095

PATIENT
  Age: 5 Month
  Sex: Female

DRUGS (1)
  1. CLOBETASOL PROPIONATE. [Suspect]
     Active Substance: CLOBETASOL PROPIONATE
     Indication: DERMATITIS DIAPER
     Dosage: UNK
     Route: 061

REACTIONS (12)
  - Fontanelle bulging [Recovered/Resolved]
  - Cerebral atrophy [Recovered/Resolved]
  - Hepatic steatosis [Recovered/Resolved]
  - Pyrexia [Recovered/Resolved]
  - Delayed myelination [Recovered/Resolved]
  - Meningitis bacterial [Recovered/Resolved]
  - Tachypnoea [Recovered/Resolved]
  - Tachycardia [Recovered/Resolved]
  - Poor feeding infant [Recovered/Resolved]
  - Cushing^s syndrome [Recovered/Resolved]
  - Lethargy [Recovered/Resolved]
  - Vomiting [Recovered/Resolved]
